FAERS Safety Report 9301532 (Version 2)
Quarter: 2013Q2

REPORT INFORMATION
  Report Type: Spontaneous
  Country: TW (occurrence: TW)
  Receive Date: 20130521
  Receipt Date: 20130529
  Transmission Date: 20140414
  Serious: Yes (Other)
  Sender: FDA-Public Use
  Company Number: TW-009507513-1305TWN010303

PATIENT
  Age: 32 Year
  Sex: Male

DRUGS (2)
  1. INTRONA [Suspect]
     Indication: GORHAM^S DISEASE
     Dosage: 50 MICROGRAM, BID, FOR 1 WEEK
     Route: 058
  2. INTRONA [Suspect]
     Indication: HEPATITIS C

REACTIONS (11)
  - Acute respiratory failure [Recovered/Resolved]
  - Tachycardia [Recovered/Resolved]
  - Tachypnoea [Recovered/Resolved]
  - Fungaemia [Recovered/Resolved]
  - Pyrexia [Recovered/Resolved]
  - Chills [Unknown]
  - Chills [Unknown]
  - Malaise [Unknown]
  - Decreased appetite [Unknown]
  - Pneumonia [Recovered/Resolved]
  - Off label use [Unknown]
